FAERS Safety Report 16400668 (Version 7)
Quarter: 2020Q1

REPORT INFORMATION
  Report Type: Report from Study
  Country: US (occurrence: US)
  Receive Date: 20190606
  Receipt Date: 20200129
  Transmission Date: 20200409
  Serious: Yes (Hospitalization)
  Sender: FDA-Public Use
  Company Number: US-ACTELION-A-NJ2019-187544

PATIENT
  Age: 75 Year
  Sex: Male
  Weight: 64.85 kg

DRUGS (3)
  1. VELETRI [Suspect]
     Active Substance: EPOPROSTENOL
     Dosage: 11 NG/KG, PER MIN
     Route: 042
  2. VELETRI [Suspect]
     Active Substance: EPOPROSTENOL
     Indication: PULMONARY ARTERIAL HYPERTENSION
     Dosage: 31 NG/KG, PER MIN
     Route: 042
  3. VELETRI [Suspect]
     Active Substance: EPOPROSTENOL
     Dosage: 5 NG/KG, PER MIN
     Route: 042

REACTIONS (12)
  - Back pain [Unknown]
  - Cardiac disorder [Not Recovered/Not Resolved]
  - Fluid overload [Unknown]
  - Weight decreased [Unknown]
  - Headache [Unknown]
  - Chronic obstructive pulmonary disease [Unknown]
  - Infection [Unknown]
  - Lung disorder [Not Recovered/Not Resolved]
  - Pneumonia [Recovering/Resolving]
  - Therapy change [Recovered/Resolved]
  - Nephrolithiasis [Unknown]
  - Influenza [Unknown]

NARRATIVE: CASE EVENT DATE: 201902
